FAERS Safety Report 9776228 (Version 1)
Quarter: 2013Q4

REPORT INFORMATION
  Report Type: Report from Study
  Country: US (occurrence: US)
  Receive Date: 20131220
  Receipt Date: 20131220
  Transmission Date: 20140711
  Serious: Yes (Life-Threatening)
  Sender: FDA-Public Use
  Company Number: US-US-EMD SERONO, INC.-7258221

PATIENT
  Age: 48 Year
  Sex: Female

DRUGS (2)
  1. REBIF [Suspect]
     Indication: MULTIPLE SCLEROSIS
     Route: 058
     Dates: start: 20130403
  2. HEPARIN [Concomitant]
     Indication: PRODUCT USED FOR UNKNOWN INDICATION

REACTIONS (11)
  - Pneumonia aspiration [Unknown]
  - Loss of consciousness [Recovered/Resolved]
  - Acute respiratory failure [Unknown]
  - Brain oedema [Unknown]
  - Hypoxia [Unknown]
  - Delirium [Unknown]
  - Hypertensive crisis [Unknown]
  - Kidney infection [Unknown]
  - Hypercapnia [Unknown]
  - Injection site bruising [Recovering/Resolving]
  - Fatigue [Not Recovered/Not Resolved]
